FAERS Safety Report 6354533-1 (Version None)
Quarter: 2009Q3

REPORT INFORMATION
  Report Type: 
  Country: None (occurrence: None)
  Receive Date: 20090914
  Receipt Date: 20090904
  Transmission Date: 20100115
  Serious: Yes (Hospitalization)
  Sender: FDA-Public Use
  Company Number: DE-AVENTIS-200912245DE

PATIENT
  Age: 70 Year
  Sex: Male

DRUGS (9)
  1. ENOXAPARIN SODIUM [Suspect]
     Indication: CARDIAC PACEMAKER INSERTION
     Route: 058
     Dates: start: 20090605, end: 20090724
  2. ASPIRIN [Suspect]
     Route: 048
     Dates: start: 20070101
  3. AQUAPHOR                           /00298701/ [Suspect]
     Route: 048
     Dates: start: 20090620
  4. FURORESE                           /00032601/ [Suspect]
     Route: 048
     Dates: start: 20090620
  5. INSPRA [Suspect]
     Route: 048
     Dates: start: 20071101
  6. RAMIPRIL [Suspect]
     Route: 048
     Dates: start: 20050101
  7. BISOLICH [Concomitant]
     Route: 048
     Dates: start: 20030101
  8. DIGITOXIN [Concomitant]
     Route: 048
     Dates: start: 20030101
  9. PHENPROCOUMON [Concomitant]
     Indication: CARDIAC PACEMAKER INSERTION
     Dosage: DOSE: NOT REPORTED
     Dates: start: 20071001, end: 20090601

REACTIONS (7)
  - BLOOD SODIUM DECREASED [None]
  - CARDIOMEGALY [None]
  - DEHYDRATION [None]
  - HAEMOGLOBIN DECREASED [None]
  - RENAL FAILURE ACUTE [None]
  - SHOCK HAEMORRHAGIC [None]
  - URETHRAL HAEMORRHAGE [None]
